FAERS Safety Report 7227716-6 (Version None)
Quarter: 2011Q1

REPORT INFORMATION
  Report Type: 
  Country: None (occurrence: None)
  Receive Date: 20110114
  Receipt Date: 20101118
  Transmission Date: 20110831
  Serious: Yes (Hospitalization, Other)
  Sender: FDA-Public Use
  Company Number: US-BAYER-201030247NA

PATIENT
  Sex: Female
  Weight: 86 kg

DRUGS (21)
  1. YASMIN [Suspect]
     Indication: ACNE
  2. OCELLA [Suspect]
     Indication: PREMENSTRUAL SYNDROME
     Dates: start: 20080101
  3. SOMA [Concomitant]
     Indication: BACK PAIN
     Dosage: 350 MG 1/2 TAB. QHS
  4. TOPAMAX [Concomitant]
     Indication: MIGRAINE
  5. ZYRTEC [Concomitant]
     Indication: MULTIPLE ALLERGIES
  6. CARISOPRODOL [Concomitant]
     Indication: MIGRAINE
  7. NORTRIPTYLINE [Concomitant]
     Indication: MIGRAINE
  8. ZYRTEC [Concomitant]
     Indication: URTICARIA
  9. BENTYL [Concomitant]
  10. EXCEDRIN (MIGRAINE) [Concomitant]
  11. NORTRIPTYLINE [Concomitant]
  12. YASMIN [Suspect]
     Indication: CONTRACEPTION
  13. OCELLA [Suspect]
     Indication: CONTRACEPTION
  14. PRILOSEC [Concomitant]
  15. YAZ [Suspect]
     Indication: PREMENSTRUAL SYNDROME
     Route: 048
     Dates: start: 20040101, end: 20080615
  16. OCELLA [Suspect]
     Indication: ACNE
  17. LORATADINE [Concomitant]
  18. SOMA [Concomitant]
     Indication: INSOMNIA
  19. NSAID'S [Concomitant]
     Indication: BACK PAIN
  20. YASMIN [Suspect]
     Indication: PREMENSTRUAL SYNDROME
     Route: 048
     Dates: start: 20030101, end: 20080615
  21. HYDROCODONE [Concomitant]
     Indication: PAIN

REACTIONS (3)
  - BILE DUCT OBSTRUCTION [None]
  - CHOLELITHIASIS [None]
  - CHOLECYSTITIS [None]
